FAERS Safety Report 16979761 (Version 1)
Quarter: 2019Q4

REPORT INFORMATION
  Report Type: Report from Study
  Country: US (occurrence: US)
  Receive Date: 20191031
  Receipt Date: 20191031
  Transmission Date: 20200122
  Serious: Yes (Other)
  Sender: FDA-Public Use
  Company Number: US-GLAXOSMITHKLINE-US2019TSO195699

PATIENT
  Age: 77 Year
  Sex: Female

DRUGS (1)
  1. NIRAPARIB [Suspect]
     Active Substance: NIRAPARIB
     Indication: OVARIAN CANCER
     Dosage: 300 MG, QD
     Route: 048
     Dates: start: 20191010, end: 20191014

REACTIONS (8)
  - Heart rate irregular [Unknown]
  - Blood pressure increased [Unknown]
  - Heart rate increased [Unknown]
  - Transient ischaemic attack [Unknown]
  - Palpitations [Unknown]
  - Speech disorder [Unknown]
  - Anxiety [Unknown]
  - Blood thyroid stimulating hormone increased [Unknown]

NARRATIVE: CASE EVENT DATE: 20191014
